FAERS Safety Report 8233638-4 (Version None)
Quarter: 2012Q1

REPORT INFORMATION
  Report Type: 
  Country: None (occurrence: None)
  Receive Date: 20120326
  Receipt Date: 20120314
  Transmission Date: 20120608
  Serious: Yes (Life-Threatening, Hospitalization, Other)
  Sender: FDA-Public Use
  Company Number: US-ELI_LILLY_AND_COMPANY-US201203004645

PATIENT
  Age: 62 Year
  Sex: Male

DRUGS (4)
  1. FOLIC ACID [Concomitant]
  2. FORTEO [Suspect]
     Dosage: 20 UG, QD
     Dates: start: 20120308
  3. FORTEO [Suspect]
     Indication: OSTEOPOROSIS
     Dosage: 20 UG, QD
  4. IRON [Concomitant]

REACTIONS (4)
  - ATRIAL FIBRILLATION [None]
  - CONGENITAL HEART VALVE DISORDER [None]
  - PULMONARY EMBOLISM [None]
  - VITAMIN D DEFICIENCY [None]
